FAERS Safety Report 17195808 (Version 1)
Quarter: 2019Q4

REPORT INFORMATION
  Report Type: Spontaneous
  Country: FR (occurrence: FR)
  Receive Date: 20191224
  Receipt Date: 20191224
  Transmission Date: 20200122
  Serious: Yes (Death)
  Sender: FDA-Public Use
  Company Number: FR-ELI_LILLY_AND_COMPANY-13423488

PATIENT
  Age: 73 Year
  Sex: Female

DRUGS (4)
  1. ERBITUX [Suspect]
     Active Substance: CETUXIMAB
     Indication: COLORECTAL CANCER
     Dosage: 492 MG, QWK
     Route: 042
     Dates: start: 20060510, end: 20060517
  2. SIMVASTATIN. [Suspect]
     Active Substance: SIMVASTATIN
     Indication: COLORECTAL CANCER
     Dosage: 650 MG, QD
     Route: 042
     Dates: start: 20060510, end: 20060510
  3. OXALIPLATIN. [Suspect]
     Active Substance: OXALIPLATIN
     Indication: COLORECTAL CANCER
     Dosage: UNK
     Route: 042
     Dates: start: 20060510, end: 20060511
  4. XELODA [Suspect]
     Active Substance: CAPECITABINE
     Indication: COLORECTAL CANCER
     Dosage: UNK UNK, QD
     Route: 048
     Dates: start: 20060510, end: 20060522

REACTIONS (1)
  - Pulmonary embolism [Fatal]

NARRATIVE: CASE EVENT DATE: 20060524
